FAERS Safety Report 5213935-7 (Version None)
Quarter: 2007Q1

REPORT INFORMATION
  Report Type: 
  Country: None (occurrence: None)
  Receive Date: 20070111
  Receipt Date: 20070102
  Transmission Date: 20070707
  Serious: Yes (Hospitalization)
  Sender: FDA-Public Use
  Company Number: 200608AGG00550

PATIENT
  Age: 75 Year
  Sex: Male

DRUGS (4)
  1. AGGRASTAT [Suspect]
     Dosage: (12.5 MG/ML  (0.4MCG PER KG OF WEIGHT) INTRAVENOUS (NOT OTHERWISE SPECIFIED)
     Route: 042
     Dates: start: 20061207, end: 20061207
  2. ASPIRIN [Concomitant]
  3. CLOPIDOGREL BISULFATE [Concomitant]
  4. HEPARIN [Concomitant]

REACTIONS (4)
  - AGITATION [None]
  - PYREXIA [None]
  - THROMBOCYTOPENIA [None]
  - TREMOR [None]
